FAERS Safety Report 10357131 (Version 8)
Quarter: 2016Q4

REPORT INFORMATION
  Report Type: Report from Study
  Country: AU (occurrence: AU)
  Receive Date: 20140801
  Receipt Date: 20161121
  Transmission Date: 20170206
  Serious: Yes (Hospitalization, Other)
  Sender: FDA-Public Use
  Company Number: AU-ALEXION PHARMACEUTICALS INC.-A201402927

PATIENT
  Age: 81 Year
  Sex: Female

DRUGS (2)
  1. SOLIRIS [Suspect]
     Active Substance: ECULIZUMAB
     Dosage: 900 MG, Q2W
     Route: 042
  2. SOLIRIS [Suspect]
     Active Substance: ECULIZUMAB
     Indication: PAROXYSMAL NOCTURNAL HAEMOGLOBINURIA
     Dosage: 600 MG, QW
     Route: 042
     Dates: start: 201111

REACTIONS (13)
  - Pain in extremity [Recovered/Resolved]
  - Circulatory collapse [Unknown]
  - Cholelithiasis [Recovered/Resolved]
  - Carpal tunnel syndrome [Recovered/Resolved]
  - Urinary tract infection [Recovered/Resolved]
  - Arthralgia [Not Recovered/Not Resolved]
  - Cholelithiasis [Recovered/Resolved]
  - Syncope [Recovered/Resolved]
  - Pain [Not Recovered/Not Resolved]
  - Cholecystitis [Unknown]
  - Cholelithiasis [Recovered/Resolved]
  - Blood lactate dehydrogenase increased [Unknown]
  - Musculoskeletal pain [Recovered/Resolved]

NARRATIVE: CASE EVENT DATE: 201404
